FAERS Safety Report 8790475 (Version 2)
Quarter: 2013Q1

REPORT INFORMATION
  Report Type: Spontaneous
  Country: BR (occurrence: None)
  Receive Date: 20120906
  Receipt Date: 20121206
  Transmission Date: 20140127
  Serious: Yes (Hospitalization)
  Sender: FDA-Public Use
  Company Number: DKLU1084265

PATIENT
  Age: 3 Year
  Sex: Female

DRUGS (3)
  1. ONFI [Suspect]
     Indication: ANGELMAN^S SYNDROME
     Route: 048
     Dates: start: 201202
  2. ONFI [Suspect]
     Indication: CONVULSION
     Route: 048
     Dates: start: 201202
  3. VALPAKINE (VALPROATE SODIUM) [Concomitant]

REACTIONS (2)
  - Aphagia [None]
  - Thrombocytopenia [None]
